FAERS Safety Report 18135228 (Version 1)
Quarter: 2020Q3

REPORT INFORMATION
  Report Type: Spontaneous
  Country: US (occurrence: US)
  Receive Date: 20200810
  Receipt Date: 20200810
  Transmission Date: 20201103
  Serious: No
  Sender: FDA-Public Use
  Company Number: None

PATIENT
  Sex: Female

DRUGS (1)
  1. RASUVO [Suspect]
     Active Substance: METHOTREXATE SODIUM
     Indication: ARTHRITIS ENTEROPATHIC
     Dosage: ?          OTHER DOSE:1 PEN;?
     Route: 058
     Dates: start: 20200228

REACTIONS (1)
  - Drug ineffective [None]
